FAERS Safety Report 8180982-5 (Version None)
Quarter: 2012Q1

REPORT INFORMATION
  Report Type: 
  Country: None (occurrence: None)
  Receive Date: 20120302
  Receipt Date: 20120227
  Transmission Date: 20120608
  Serious: No
  Sender: FDA-Public Use
  Company Number: US-BAYER-2012-019858

PATIENT
  Age: 65 Year
  Sex: Female

DRUGS (4)
  1. AVELOX [Suspect]
     Indication: SINUSITIS
     Dosage: 400 MG, QD
     Route: 048
     Dates: start: 20120227
  2. LOSARTAN POTASSIUM [Concomitant]
     Dosage: 1/2 OF A 50MG
  3. NEXIUM [Concomitant]
  4. HYDROCHLOROTHIAZIDE [Concomitant]
     Dosage: 12.5MG

REACTIONS (4)
  - SKIN BURNING SENSATION [None]
  - DIZZINESS [None]
  - FATIGUE [None]
  - PARAESTHESIA [None]
